FAERS Safety Report 6768558-5 (Version None)
Quarter: 2010Q2

REPORT INFORMATION
  Report Type: 
  Country: None (occurrence: None)
  Receive Date: 20100614
  Receipt Date: 20100602
  Transmission Date: 20101027
  Serious: Yes (Other)
  Sender: FDA-Public Use
  Company Number: US-PFIZER INC-2010069247

PATIENT
  Sex: Female
  Weight: 52.154 kg

DRUGS (6)
  1. ZOLOFT [Suspect]
     Indication: ANXIETY
     Dosage: 200 MG DAILY
     Route: 048
     Dates: start: 19970101
  2. AMPYRA [Suspect]
     Indication: MULTIPLE SCLEROSIS
     Dosage: 10 MG EVERY 12 HOURS
     Route: 048
     Dates: start: 20100414
  3. BACLOFEN [Concomitant]
     Dosage: UNK
     Dates: start: 19990101
  4. ZYRTEC [Concomitant]
     Dosage: UNK
     Dates: start: 19900101
  5. INTERFERON BETA-1A [Concomitant]
     Dosage: UNK
     Dates: start: 19990101
  6. XANAX [Concomitant]
     Dosage: UNK
     Dates: start: 20070101

REACTIONS (5)
  - ANXIETY [None]
  - CRYING [None]
  - DRUG INEFFECTIVE [None]
  - DRUG INTERACTION [None]
  - MULTIPLE SCLEROSIS [None]
